FAERS Safety Report 17693730 (Version 1)
Quarter: 2020Q2

REPORT INFORMATION
  Report Type: Spontaneous
  Country: CN (occurrence: CN)
  Receive Date: 20200422
  Receipt Date: 20200422
  Transmission Date: 20200714
  Serious: Yes (Other)
  Sender: FDA-Public Use
  Company Number: CN-PFIZER INC-2020158671

PATIENT
  Age: 74 Year
  Sex: Male
  Weight: 68 kg

DRUGS (4)
  1. BI CUN [Concomitant]
     Active Substance: EDARAVONE
     Indication: THERAPEUTIC PROCEDURE
     Dosage: 30.000 MG, 2X/DAY
     Route: 041
     Dates: start: 20200310, end: 20200320
  2. BUTYLPHTHALIDE/SODIUM CHLORIDE [Concomitant]
     Indication: THERAPEUTIC PROCEDURE
     Dosage: 25.000 MG, 2X/DAY
     Route: 041
     Dates: start: 20200310, end: 20200323
  3. PIPERACILLIN AND TAZOBACTAM [Concomitant]
     Active Substance: PIPERACILLIN SODIUM\TAZOBACTAM SODIUM
     Indication: INFECTION
     Dosage: 4.500 G, 3X/DAY
     Route: 041
     Dates: start: 20200312, end: 20200321
  4. LIPITOR [Suspect]
     Active Substance: ATORVASTATIN CALCIUM
     Indication: LIPIDS ABNORMAL
     Dosage: 40.000 MG, 1X/DAY
     Route: 048
     Dates: start: 20200310, end: 20200315

REACTIONS (6)
  - Blood bilirubin increased [Recovering/Resolving]
  - Hepatic enzyme increased [Recovering/Resolving]
  - Aspartate aminotransferase increased [Recovering/Resolving]
  - Alanine aminotransferase increased [Recovering/Resolving]
  - Bilirubin conjugated increased [Recovering/Resolving]
  - Hepatic function abnormal [Recovering/Resolving]

NARRATIVE: CASE EVENT DATE: 20200314
